FAERS Safety Report 10447743 (Version 1)
Quarter: 2014Q3

REPORT INFORMATION
  Report Type: Spontaneous
  Country: JP (occurrence: JP)
  Receive Date: 20140911
  Receipt Date: 20140911
  Transmission Date: 20150326
  Serious: No
  Sender: FDA-Public Use
  Company Number: PHHY2013JP162589

PATIENT

DRUGS (3)
  1. PREDNISOLONE. [Concomitant]
     Active Substance: PREDNISOLONE
  2. TASIGNA [Suspect]
     Active Substance: NILOTINIB
     Dosage: 800 MG, UNK
  3. TASIGNA [Suspect]
     Active Substance: NILOTINIB
     Dosage: 800 MG, UNK

REACTIONS (3)
  - Rash [Recovered/Resolved]
  - Muscle spasms [Unknown]
  - Oedema [Unknown]
